FAERS Safety Report 7367115-X (Version None)
Quarter: 2011Q1

REPORT INFORMATION
  Report Type: 
  Country: None (occurrence: None)
  Receive Date: 20110322
  Receipt Date: 20110318
  Transmission Date: 20110831
  Serious: Yes (Other)
  Sender: FDA-Public Use
  Company Number: US-B.I. PHARMACEUTICALS,INC./RIDGEFIELD-2011-BP-08631BP

PATIENT
  Age: 78 Year
  Sex: Male

DRUGS (5)
  1. DULCOLAX [Suspect]
     Indication: CONSTIPATION
  2. MEDICATION NOT FURTHER SPECIFIED [Concomitant]
     Indication: HYPERTENSION
  3. OXYCONTIN [Concomitant]
  4. MEDICATION NOT FURTHER SPECIFIED [Concomitant]
     Indication: CARDIAC DISORDER
  5. VICODIN [Concomitant]

REACTIONS (4)
  - MYOCARDIAL INFARCTION [None]
  - POLIOMYELITIS [None]
  - DEMENTIA [None]
  - CONSTIPATION [None]
